FAERS Safety Report 10090032 (Version 1)
Quarter: 2014Q2

REPORT INFORMATION
  Report Type: Spontaneous
  Country: FR (occurrence: FR)
  Receive Date: 20140421
  Receipt Date: 20140421
  Transmission Date: 20141212
  Serious: Yes (Death, Hospitalization)
  Sender: FDA-Public Use
  Company Number: FR-ROCHE-1382791

PATIENT
  Age: 65 Year
  Sex: Female

DRUGS (7)
  1. CELLCEPT [Suspect]
     Indication: PROPHYLAXIS AGAINST TRANSPLANT REJECTION
     Route: 048
     Dates: start: 1999
  2. CELLCEPT [Suspect]
     Route: 048
     Dates: start: 200604
  3. CELLCEPT [Suspect]
     Route: 048
     Dates: start: 201003
  4. CELLCEPT [Suspect]
     Route: 048
     Dates: start: 201210, end: 201304
  5. NEORAL [Suspect]
     Indication: PROPHYLAXIS AGAINST TRANSPLANT REJECTION
     Route: 048
     Dates: start: 1999
  6. NEORAL [Suspect]
     Route: 048
     Dates: start: 201009
  7. NEORAL [Suspect]
     Route: 048
     Dates: start: 201310

REACTIONS (2)
  - Squamous cell carcinoma of the tongue [Fatal]
  - Lung neoplasm malignant [Fatal]
